FAERS Safety Report 6170362-6 (Version None)
Quarter: 2009Q2

REPORT INFORMATION
  Report Type: 
  Country: None (occurrence: None)
  Receive Date: 20090428
  Receipt Date: 20090401
  Transmission Date: 20091009
  Serious: Yes (Other)
  Sender: FDA-Public Use
  Company Number: JP-MERCK-0904USA00731

PATIENT
  Age: 65 Year
  Sex: Female

DRUGS (2)
  1. PEPCID [Suspect]
     Route: 048
  2. GEMCITABINE [Concomitant]
     Route: 065

REACTIONS (1)
  - METASTASES TO PERITONEUM [None]
